FAERS Safety Report 8541603-2 (Version None)
Quarter: 2012Q3

REPORT INFORMATION
  Report Type: 
  Country: None (occurrence: None)
  Receive Date: 20120726
  Receipt Date: 20111026
  Transmission Date: 20120928
  Serious: No
  Sender: FDA-Public Use
  Company Number: US-JHP PHARMACEUTICALS, LLC-JHP201100505

PATIENT
  Sex: Female

DRUGS (1)
  1. COLY-MYCIN S [Suspect]
     Indication: EAR INFECTION
     Dosage: 1 GTT, BID
     Dates: start: 20111001

REACTIONS (1)
  - EAR PRURITUS [None]
